FAERS Safety Report 4757704-0 (Version None)
Quarter: 2005Q3

REPORT INFORMATION
  Report Type: 
  Country: None (occurrence: None)
  Receive Date: 20050831
  Receipt Date: 20050823
  Transmission Date: 20060218
  Serious: Yes (Hospitalization)
  Sender: FDA-Public Use
  Company Number: 2005PK01564

PATIENT
  Age: 20993 Day
  Sex: Female
  Weight: 67 kg

DRUGS (3)
  1. NOLVADEX [Suspect]
     Indication: BREAST CANCER
     Route: 048
     Dates: start: 20020607
  2. FOLIC ACID [Concomitant]
     Indication: SUBSTITUTION THERAPY
     Route: 048
  3. NOVALGIN [Concomitant]
     Indication: PAIN
     Route: 048

REACTIONS (1)
  - PHLEBITIS [None]
